FAERS Safety Report 5700100-X (Version None)
Quarter: 2008Q2

REPORT INFORMATION
  Report Type: 
  Country: None (occurrence: None)
  Receive Date: 20080410
  Receipt Date: 20080402
  Transmission Date: 20081010
  Serious: Yes (Other)
  Sender: FDA-Public Use
  Company Number: US-ASTRAZENECA-2008UW05100

PATIENT
  Age: 920 Month
  Sex: Female
  Weight: 88.5 kg

DRUGS (5)
  1. TOPROL-XL [Suspect]
     Indication: ATRIAL FIBRILLATION
     Dosage: 100 MG AM/50 MG PM
     Route: 048
     Dates: start: 20040223
  2. TOPROL-XL [Suspect]
     Indication: HYPERTENSION
     Dosage: 100 MG AM/50 MG PM
     Route: 048
     Dates: start: 20040223
  3. HYDROCHLOROTHIAZIDE [Concomitant]
     Indication: HYPERTENSION
     Route: 048
     Dates: start: 20040218
  4. ASPIRIN [Concomitant]
     Indication: ATRIAL FIBRILLATION
     Route: 048
     Dates: start: 20081109
  5. CLONIDINE HCL [Concomitant]

REACTIONS (3)
  - BLOOD PRESSURE INADEQUATELY CONTROLLED [None]
  - BLOOD PRESSURE SYSTOLIC INCREASED [None]
  - DRY MOUTH [None]
